FAERS Safety Report 17525232 (Version 2)
Quarter: 2020Q1

REPORT INFORMATION
  Report Type: Spontaneous
  Country: US (occurrence: US)
  Receive Date: 20200311
  Receipt Date: 20200331
  Transmission Date: 20200409
  Serious: No
  Sender: FDA-Public Use
  Company Number: US-ALEMBIC PHARMACUETICALS LIMITED-2020SCAL000099

PATIENT

DRUGS (1)
  1. VALSARTAN. [Suspect]
     Active Substance: VALSARTAN
     Indication: HYPERTENSION
     Dosage: 40 MILLIGRAM
     Dates: start: 20200210, end: 20200218

REACTIONS (12)
  - Intraocular pressure increased [Recovered/Resolved]
  - Extra dose administered [Unknown]
  - Headache [Recovered/Resolved]
  - Blood pressure increased [Recovered/Resolved]
  - Chills [Recovered/Resolved]
  - Rash [Recovered/Resolved]
  - Dysphagia [Recovered/Resolved]
  - Arthralgia [Recovered/Resolved]
  - Eye pain [Unknown]
  - Throat tightness [Recovered/Resolved]
  - Neck pain [Recovered/Resolved]
  - Tinnitus [Recovered/Resolved]

NARRATIVE: CASE EVENT DATE: 20200210
